FAERS Safety Report 5152303-3 (Version None)
Quarter: 2006Q4

REPORT INFORMATION
  Report Type: 
  Country: None (occurrence: None)
  Receive Date: 20061116
  Receipt Date: 20061106
  Transmission Date: 20070319
  Serious: Yes (Death)
  Sender: FDA-Public Use
  Company Number: FR-AVENTIS-200613890FR

PATIENT
  Age: 80 Year
  Sex: Female

DRUGS (11)
  1. RIFADIN [Suspect]
     Indication: LUNG INFECTION
     Route: 042
     Dates: start: 20050509, end: 20050517
  2. TARGOCID [Suspect]
     Indication: STAPHYLOCOCCAL INFECTION
     Route: 042
     Dates: start: 20050503, end: 20050517
  3. BENZODIAZEPINE DERIVATIVES [Concomitant]
  4. LASILIX                            /00032601/ [Concomitant]
     Indication: ACUTE PULMONARY OEDEMA
     Route: 042
  5. ROCEPHINE                          /00672201/ [Concomitant]
  6. OFLOCET                            /00731801/ [Concomitant]
  7. ISOSORBIDE DINITRATE [Concomitant]
  8. DOPAMINE HCL IN 5% DEXTROSE [Concomitant]
  9. DOBUTREX [Concomitant]
  10. MORPHINE [Concomitant]
  11. ERYTHROMYCIN [Concomitant]
     Route: 042
     Dates: start: 20050510, end: 20050517

REACTIONS (4)
  - ACUTE RESPIRATORY FAILURE [None]
  - LUNG DISORDER [None]
  - RENAL FAILURE [None]
  - STAPHYLOCOCCAL INFECTION [None]
